FAERS Safety Report 4570175-2 (Version None)
Quarter: 2005Q1

REPORT INFORMATION
  Report Type: 
  Country: None (occurrence: None)
  Receive Date: 20050204
  Receipt Date: 20050128
  Transmission Date: 20050727
  Serious: Yes (Death)
  Sender: FDA-Public Use
  Company Number: 200510212EU

PATIENT
  Sex: Female

DRUGS (1)
  1. AMARYL [Suspect]
     Indication: DIABETES MELLITUS
     Route: 048

REACTIONS (3)
  - BLOOD GLUCOSE DECREASED [None]
  - DEPRESSED LEVEL OF CONSCIOUSNESS [None]
  - DYSPNOEA [None]
